FAERS Safety Report 21763099 (Version 3)
Quarter: 2023Q1

REPORT INFORMATION
  Report Type: Spontaneous
  Country: JP (occurrence: JP)
  Receive Date: 20221221
  Receipt Date: 20230314
  Transmission Date: 20230417
  Serious: Yes (Death, Other)
  Sender: FDA-Public Use
  Company Number: JP-JAZZ-2022-JP-038240

PATIENT
  Age: 62 Year
  Sex: Female
  Weight: 52 kg

DRUGS (1)
  1. DEFITELIO [Suspect]
     Active Substance: DEFIBROTIDE SODIUM
     Indication: Venoocclusive liver disease
     Dosage: 25 MILLIGRAM/KILOGRAM
     Route: 042
     Dates: start: 20221121, end: 20221125

REACTIONS (3)
  - Faeces discoloured [Unknown]
  - Gastrointestinal haemorrhage [Not Recovered/Not Resolved]
  - Venoocclusive liver disease [Fatal]

NARRATIVE: CASE EVENT DATE: 20221121
